FAERS Safety Report 21323707 (Version 1)
Quarter: 2022Q3

REPORT INFORMATION
  Report Type: Spontaneous
  Country: US (occurrence: FR)
  Receive Date: 20220912
  Receipt Date: 20220912
  Transmission Date: 20221026
  Serious: Yes (Other)
  Sender: FDA-Public Use
  Company Number: US-HARMONY BIOSCIENCES-2022HMY01671

PATIENT
  Age: 45 Year
  Sex: Female

DRUGS (4)
  1. WAKIX [Suspect]
     Active Substance: PITOLISANT HYDROCHLORIDE
     Indication: Narcolepsy
     Dosage: UNK
     Route: 048
     Dates: start: 20220416
  2. SEVELAMER HYDROCHLORIDE [Concomitant]
     Active Substance: SEVELAMER HYDROCHLORIDE
     Indication: Blood phosphorus increased
     Dosage: 800 MG, 3X/DAY
     Route: 048
  3. LEVOCARNITINE [Concomitant]
     Active Substance: LEVOCARNITINE
     Indication: Muscle disorder
     Dosage: UNK, 3X/WEEK WITH DIALYSIS
     Route: 048
  4. EUROBIOL HL [Concomitant]
     Indication: Pancreatic failure
     Dosage: 6 DOSAGE FORM, 1X/DAY
     Route: 048

REACTIONS (1)
  - Hepatic cytolysis [Not Recovered/Not Resolved]

NARRATIVE: CASE EVENT DATE: 20220506
